FAERS Safety Report 5008348-7 (Version None)
Quarter: 2006Q2

REPORT INFORMATION
  Report Type: 
  Country: None (occurrence: None)
  Receive Date: 20060404
  Receipt Date: 20060130
  Transmission Date: 20061013
  Serious: No
  Sender: FDA-Public Use
  Company Number: US200601005455

PATIENT
  Sex: Female

DRUGS (1)
  1. CYMBALTA [Suspect]
     Indication: NERVOUSNESS
     Dosage: 60 MG, ORAL
     Route: 048
     Dates: start: 20050201, end: 20060125

REACTIONS (7)
  - DISTURBANCE IN ATTENTION [None]
  - HEADACHE [None]
  - LETHARGY [None]
  - MENTAL IMPAIRMENT [None]
  - NAUSEA [None]
  - PARANOIA [None]
  - SOMNOLENCE [None]
